FAERS Safety Report 19678709 (Version 1)
Quarter: 2021Q3

REPORT INFORMATION
  Report Type: Spontaneous
  Country: NL (occurrence: NL)
  Receive Date: 20210810
  Receipt Date: 20210810
  Transmission Date: 20211014
  Serious: Yes (Other)
  Sender: FDA-Public Use
  Company Number: NL-ALIMERA SCIENCES LIMITED-NL-A16013-21-000157

PATIENT

DRUGS (1)
  1. ILUVIEN [Suspect]
     Active Substance: FLUOCINOLONE ACETONIDE
     Indication: PRODUCT USED FOR UNKNOWN INDICATION
     Dosage: 0.25 MICROGRAM, QD ? UNKNOWN EYE
     Route: 031

REACTIONS (4)
  - Intraocular pressure decreased [Recovered/Resolved]
  - Device dislocation [Recovered/Resolved]
  - Vitreous haemorrhage [Unknown]
  - Vision blurred [Unknown]
